FAERS Safety Report 5776595-2 (Version None)
Quarter: 2008Q2

REPORT INFORMATION
  Report Type: 
  Country: None (occurrence: None)
  Receive Date: 20080616
  Receipt Date: 20080604
  Transmission Date: 20081010
  Serious: No
  Sender: FDA-Public Use
  Company Number: ADE2008-0146

PATIENT
  Age: 34 Year
  Sex: Male

DRUGS (2)
  1. CITALOPRAM HYDROBROMIDE [Suspect]
     Dosage: PO
     Route: 048
  2. VARENICLINE TARTRATE [Suspect]
     Indication: SMOKING CESSATION THERAPY
     Dosage: 1MG - 2X DAILY - PO
     Route: 048
     Dates: end: 20080115

REACTIONS (5)
  - AGGRESSION [None]
  - DRUG INTERACTION [None]
  - HYPOMANIA [None]
  - LEGAL PROBLEM [None]
  - MANIA [None]
